FAERS Safety Report 4686723-8 (Version None)
Quarter: 2005Q2

REPORT INFORMATION
  Report Type: 
  Country: None (occurrence: None)
  Receive Date: 20050608
  Receipt Date: 20050527
  Transmission Date: 20051028
  Serious: Yes (Other)
  Sender: FDA-Public Use
  Company Number: 215002

PATIENT
  Age: 63 Year
  Sex: Male
  Weight: 120 kg

DRUGS (7)
  1. MABTHERA (RITUXIMAB) CONC FOR SOLUTION FOR INFUSION [Suspect]
     Indication: CHRONIC LYMPHOCYTIC LEUKAEMIA
     Dosage: 1140 MG, INTRAVENOUS
     Route: 042
     Dates: start: 20040915, end: 20040915
  2. MABTHERA (RITUXIMAB) CONC FOR SOLUTION FOR INFUSION [Suspect]
     Indication: CHRONIC LYMPHOCYTIC LEUKAEMIA
     Dosage: 1140 MG, INTRAVENOUS
     Route: 042
     Dates: start: 20041027
  3. FLUDARABINE PHOSPHATE [Suspect]
     Indication: CHRONIC LYMPHOCYTIC LEUKAEMIA
     Dosage: SEE IMAGE, INTRAVENOUS
     Route: 042
     Dates: start: 20040915, end: 20040917
  4. FLUDARABINE PHOSPHATE [Suspect]
     Indication: CHRONIC LYMPHOCYTIC LEUKAEMIA
     Dosage: SEE IMAGE, INTRAVENOUS
     Route: 042
     Dates: start: 20041027
  5. CYCLOPHOSPHAMIDE [Suspect]
     Indication: CHRONIC LYMPHOCYTIC LEUKAEMIA
     Dosage: SEE IMAGE, INTRAVENOUS
     Route: 042
     Dates: start: 20040915, end: 20040917
  6. CYCLOPHOSPHAMIDE [Suspect]
     Indication: CHRONIC LYMPHOCYTIC LEUKAEMIA
     Dosage: SEE IMAGE, INTRAVENOUS
     Route: 042
     Dates: start: 20041027
  7. BACTRIM DS [Concomitant]

REACTIONS (1)
  - NEUTROPENIA [None]
